FAERS Safety Report 6329831-8 (Version None)
Quarter: 2009Q3

REPORT INFORMATION
  Report Type: 
  Country: None (occurrence: None)
  Receive Date: 20090826
  Receipt Date: 20090818
  Transmission Date: 20100115
  Serious: Yes (Other)
  Sender: FDA-Public Use
  Company Number: US-CELGENEUS-163-20785-09051130

PATIENT
  Sex: Female

DRUGS (1)
  1. THALOMID [Suspect]
     Indication: MULTIPLE MYELOMA
     Route: 048
     Dates: start: 20090114, end: 20090520

REACTIONS (4)
  - ASTHENIA [None]
  - BLINDNESS [None]
  - CONFUSIONAL STATE [None]
  - STAPHYLOCOCCAL SEPSIS [None]
